FAERS Safety Report 6827760-4 (Version None)
Quarter: 2010Q3

REPORT INFORMATION
  Report Type: 
  Country: None (occurrence: None)
  Receive Date: 20100709
  Receipt Date: 20100628
  Transmission Date: 20110219
  Serious: No
  Sender: FDA-Public Use
  Company Number: B0627404A

PATIENT
  Sex: Female
  Weight: 52 kg

DRUGS (8)
  1. RELENZA [Suspect]
     Indication: ANTIVIRAL PROPHYLAXIS
     Dosage: 10MG PER DAY
     Route: 055
     Dates: start: 20100115, end: 20100119
  2. INFLUENZA HA VACCINE [Concomitant]
     Indication: ANTIVIRAL PROPHYLAXIS
     Dates: start: 20091203, end: 20091203
  3. ZITHROMAX [Concomitant]
     Route: 048
     Dates: start: 20100115, end: 20100117
  4. CALONAL [Concomitant]
     Dates: start: 20100115, end: 20100117
  5. MEDICON [Concomitant]
     Dosage: 6IUAX PER DAY
     Route: 048
     Dates: start: 20100309, end: 20100311
  6. CEFZON [Concomitant]
     Dosage: 3IUAX PER DAY
     Route: 048
     Dates: start: 20100309, end: 20100311
  7. RITODRINE HYDROCHLORIDE [Concomitant]
     Dosage: 4IUAX PER DAY
     Dates: start: 20100115, end: 20100308
  8. FERROMIA [Concomitant]
     Dosage: 2IUAX PER DAY
     Route: 048
     Dates: start: 20100210, end: 20100223

REACTIONS (2)
  - DELIVERY [None]
  - DRUG EXPOSURE DURING PREGNANCY [None]
